FAERS Safety Report 8790507 (Version 1)
Quarter: 2012Q4

REPORT INFORMATION
  Report Type: Spontaneous
  Country: US (occurrence: None)
  Receive Date: 20120911
  Receipt Date: 20120911
  Transmission Date: 20130627
  Serious: No
  Sender: FDA-Public Use
  Company Number: None

PATIENT
  Sex: Male
  Weight: 92.53 kg

DRUGS (1)
  1. HYDROCHLOROTHIAZIDE [Suspect]
     Dosage: 6/26 to 9/1/2012 
one tablet daily mouth
     Route: 048
     Dates: end: 20120901

REACTIONS (2)
  - Drug ineffective [None]
  - Counterfeit drug administered [None]
